FAERS Safety Report 6859767-5 (Version None)
Quarter: 2010Q3

REPORT INFORMATION
  Report Type: 
  Country: None (occurrence: None)
  Receive Date: 20100720
  Receipt Date: 20100712
  Transmission Date: 20110219
  Serious: Yes (Life-Threatening, Hospitalization)
  Sender: FDA-Public Use
  Company Number: US-CELGENEUS-163-21880-10060800

PATIENT
  Sex: Female

DRUGS (2)
  1. REVLIMID [Suspect]
     Indication: MULTIPLE MYELOMA
     Route: 048
     Dates: start: 20100401
  2. REVLIMID [Suspect]
     Route: 048
     Dates: start: 20100602

REACTIONS (5)
  - BLOOD POTASSIUM DECREASED [None]
  - DECREASED APPETITE [None]
  - DEHYDRATION [None]
  - FULL BLOOD COUNT DECREASED [None]
  - RENAL FAILURE [None]
